FAERS Safety Report 11746237 (Version 1)
Quarter: 2015Q4

REPORT INFORMATION
  Report Type: Spontaneous
  Country: AU (occurrence: AU)
  Receive Date: 20151117
  Receipt Date: 20151117
  Transmission Date: 20160304
  Serious: Yes (Other)
  Sender: FDA-Public Use
  Company Number: PHHY2015AU147606

PATIENT
  Age: 42 Year
  Sex: Female

DRUGS (2)
  1. DIAZEPAM. [Suspect]
     Active Substance: DIAZEPAM
     Indication: PRODUCT USED FOR UNKNOWN INDICATION
     Dosage: 7 MG, QD
     Route: 065
  2. DIAZEPAM. [Suspect]
     Active Substance: DIAZEPAM
     Dosage: 49 MG, QW
     Route: 065

REACTIONS (9)
  - Pain [Unknown]
  - Panic disorder [Unknown]
  - Insomnia [Unknown]
  - Hypersensitivity [Unknown]
  - Asthenia [Unknown]
  - Tachycardia [Unknown]
  - Depression [Unknown]
  - Drug ineffective [Unknown]
  - Muscle tightness [Unknown]
